FAERS Safety Report 9562990 (Version 1)
Quarter: 2013Q3

REPORT INFORMATION
  Report Type: Spontaneous
  Country: CH (occurrence: CH)
  Receive Date: 20130927
  Receipt Date: 20130927
  Transmission Date: 20140515
  Serious: Yes (Life-Threatening)
  Sender: FDA-Public Use
  Company Number: CH-MYLANLABS-2013S1021064

PATIENT
  Age: 52 Year
  Sex: Female

DRUGS (2)
  1. MYCOPHENOLATE MOFETIL [Suspect]
     Indication: MYOCARDITIS
     Route: 065
  2. SIROLIMUS [Concomitant]
     Indication: MYOCARDITIS
     Route: 065

REACTIONS (2)
  - Colitis [Recovered/Resolved]
  - Toxicity to various agents [Recovered/Resolved]
